FAERS Safety Report 5518438-8 (Version None)
Quarter: 2007Q4

REPORT INFORMATION
  Report Type: 
  Country: None (occurrence: None)
  Receive Date: 20071115
  Receipt Date: 20071102
  Transmission Date: 20080405
  Serious: Yes (Other)
  Sender: FDA-Public Use
  Company Number: US-ELI_LILLY_AND_COMPANY-US200711000778

PATIENT
  Sex: Female

DRUGS (6)
  1. EVISTA [Suspect]
     Dosage: 60 MG, UNK
     Route: 048
     Dates: start: 20050101
  2. FORTEO [Suspect]
     Dates: start: 20060101
  3. CALCIUM CARBONATE [Concomitant]
  4. VITAMINS-MINERALS THERAPEUTIC [Concomitant]
  5. DOPAMINE HCL [Concomitant]
     Indication: PARKINSON'S DISEASE
     Dosage: UNK, UNK
  6. STALEVO 100 [Concomitant]
     Indication: PARKINSON'S DISEASE
     Dates: end: 20071101

REACTIONS (12)
  - CLAVICLE FRACTURE [None]
  - CONFUSIONAL STATE [None]
  - DYSPHAGIA [None]
  - FALL [None]
  - JOINT INJURY [None]
  - MASKED FACIES [None]
  - MEMORY IMPAIRMENT [None]
  - MENTAL STATUS CHANGES [None]
  - PARKINSON'S DISEASE [None]
  - PHARMACEUTICAL PRODUCT COMPLAINT [None]
  - RIB FRACTURE [None]
  - UPPER LIMB FRACTURE [None]
